FAERS Safety Report 10418376 (Version 1)
Quarter: 2014Q2

REPORT INFORMATION
  Report Type: Spontaneous
  Country: US (occurrence: None)
  Receive Date: 20140613
  Receipt Date: 20140613
  Transmission Date: 20141212
  Serious: Yes (Other)
  Sender: FDA-Public Use
  Company Number: 1392072

PATIENT
  Age: 57 Year
  Sex: Female

DRUGS (1)
  1. VEMURAFENIB [Suspect]
     Indication: METASTATIC MALIGNANT MELANOMA
     Dosage: UNKNOWN DOSE + FREQUENCY + ROUTE USED
     Dates: start: 201205

REACTIONS (1)
  - Squamous cell carcinoma [None]
